FAERS Safety Report 9911557 (Version 1)
Quarter: 2014Q1

REPORT INFORMATION
  Report Type: Spontaneous
  Country: BR (occurrence: BR)
  Receive Date: 20140219
  Receipt Date: 20140219
  Transmission Date: 20141002
  Serious: Yes (Other)
  Sender: FDA-Public Use
  Company Number: PHHY2014BR019935

PATIENT
  Age: 6 Year
  Sex: Male
  Weight: 24 kg

DRUGS (5)
  1. TOFRANIL [Suspect]
     Indication: ATTENTION DEFICIT/HYPERACTIVITY DISORDER
     Dosage: 1 DF, BID
     Route: 048
     Dates: start: 201307, end: 201309
  2. TOFRANIL [Suspect]
     Indication: OFF LABEL USE
  3. RITALIN LA [Suspect]
     Indication: ATTENTION DEFICIT/HYPERACTIVITY DISORDER
     Dosage: 1 DF, BID (AT 11:00 H AND 16:00 H)
     Route: 048
     Dates: end: 201307
  4. CONCERTA [Suspect]
     Indication: ATTENTION DEFICIT/HYPERACTIVITY DISORDER
     Dosage: 1 DF, QD (AT 11:00)
     Route: 048
     Dates: start: 201309
  5. QUEROMAX [Suspect]
     Indication: NERVOUS SYSTEM DISORDER
     Dosage: 1 DF, QD (AT 19:00)
     Route: 048
     Dates: start: 201309

REACTIONS (5)
  - Atrophy [Unknown]
  - Nervous system disorder [Unknown]
  - Eye swelling [Recovered/Resolved]
  - Lip swelling [Recovered/Resolved]
  - Drug ineffective [Unknown]
